FAERS Safety Report 13105422 (Version 1)
Quarter: 2017Q1

REPORT INFORMATION
  Report Type: Other
  Country: PT (occurrence: PT)
  Receive Date: 20170111
  Receipt Date: 20170111
  Transmission Date: 20170428
  Serious: Yes (Hospitalization)
  Sender: FDA-Public Use
  Company Number: PT-ACTELION-A-CH2017-148189

PATIENT
  Age: 34 Year
  Sex: Female

DRUGS (7)
  1. BOSENTAN. [Suspect]
     Active Substance: BOSENTAN
     Indication: SKIN ULCER
     Route: 048
  2. METHOTREXATE. [Concomitant]
     Active Substance: METHOTREXATE
  3. ASA [Concomitant]
     Active Substance: ASPIRIN
  4. PENTOXYPHYLLINUM [Concomitant]
  5. DEFLAZACORT [Concomitant]
     Active Substance: DEFLAZACORT
  6. OMEPRAZOL [Concomitant]
     Active Substance: OMEPRAZOLE
  7. NIFEDIPINE. [Concomitant]
     Active Substance: NIFEDIPINE

REACTIONS (11)
  - Gastrooesophageal reflux disease [Unknown]
  - Systemic scleroderma [Unknown]
  - Chemical poisoning [Unknown]
  - Condition aggravated [Unknown]
  - Constipation [Unknown]
  - Systemic sclerosis pulmonary [Unknown]
  - Autoinflammatory disease [Unknown]
  - Skin ulcer [Unknown]
  - Fatigue [Unknown]
  - Adjuvant therapy [Unknown]
  - Skin hypertrophy [Unknown]
